FAERS Safety Report 7734277-1 (Version None)
Quarter: 2011Q3

REPORT INFORMATION
  Report Type: 
  Country: None (occurrence: None)
  Receive Date: 20110907
  Receipt Date: 20110829
  Transmission Date: 20111222
  Serious: Yes (Hospitalization)
  Sender: FDA-Public Use
  Company Number: US-EISAI INC-E7389-01455-CLI-US

PATIENT
  Sex: Male

DRUGS (13)
  1. EPIRUBICIN HYDROCHLORIDE [Suspect]
     Indication: NON-SMALL CELL LUNG CANCER
     Route: 041
     Dates: start: 20110707
  2. NEURONTIN [Concomitant]
     Route: 048
     Dates: start: 20110629
  3. FOLIC ACID [Concomitant]
     Indication: PREMEDICATION
     Route: 048
     Dates: start: 20110629
  4. VICODIN [Concomitant]
     Indication: METASTATIC PAIN
     Route: 048
     Dates: start: 20110629
  5. CLARITIN [Concomitant]
     Route: 048
     Dates: start: 20110714
  6. VALTREX [Concomitant]
     Route: 048
     Dates: start: 20110804
  7. MEGACE [Concomitant]
     Indication: APPETITE DISORDER
     Route: 048
     Dates: start: 20110804
  8. MILK OF MAGNESIA TAB [Concomitant]
     Indication: CONSTIPATION
     Route: 048
     Dates: start: 20110825
  9. PRILOSEC [Concomitant]
     Route: 048
     Dates: start: 20110714
  10. MIRALAX [Concomitant]
     Indication: CONSTIPATION
     Route: 048
     Dates: start: 20110714
  11. BIOTENE [Concomitant]
     Route: 048
     Dates: start: 20110804
  12. ACETAMINOPHEN [Concomitant]
     Indication: METASTATIC PAIN
     Route: 048
     Dates: start: 20110714
  13. PEMETREXED [Concomitant]
     Indication: NON-SMALL CELL LUNG CANCER
     Route: 041
     Dates: start: 20110707

REACTIONS (1)
  - SEPSIS [None]
